FAERS Safety Report 25142444 (Version 1)
Quarter: 2025Q1

REPORT INFORMATION
  Report Type: Spontaneous
  Country: ES (occurrence: ES)
  Receive Date: 20250331
  Receipt Date: 20250331
  Transmission Date: 20250408
  Serious: Yes (Hospitalization, Other)
  Sender: MYLAN
  Company Number: ES-MYLANLABS-2025M1026999

PATIENT
  Age: 11 Year
  Sex: Female

DRUGS (24)
  1. ARIPIPRAZOLE [Suspect]
     Active Substance: ARIPIPRAZOLE
     Indication: Product used for unknown indication
  2. ARIPIPRAZOLE [Suspect]
     Active Substance: ARIPIPRAZOLE
     Route: 065
  3. ARIPIPRAZOLE [Suspect]
     Active Substance: ARIPIPRAZOLE
     Route: 065
  4. ARIPIPRAZOLE [Suspect]
     Active Substance: ARIPIPRAZOLE
  5. CENOBAMATE [Suspect]
     Active Substance: CENOBAMATE
     Indication: Product used for unknown indication
     Dosage: 6.25 MILLIGRAM, QD (0-0-6.25 MG)
     Route: 065
  6. CENOBAMATE [Suspect]
     Active Substance: CENOBAMATE
     Dosage: 6.25 MILLIGRAM, QD (0-0-6.25 MG)
  7. CENOBAMATE [Suspect]
     Active Substance: CENOBAMATE
     Dosage: 6.25 MILLIGRAM, QD (0-0-6.25 MG)
  8. CENOBAMATE [Suspect]
     Active Substance: CENOBAMATE
     Dosage: 6.25 MILLIGRAM, QD (0-0-6.25 MG)
     Route: 065
  9. CENOBAMATE [Suspect]
     Active Substance: CENOBAMATE
     Dosage: 100 MILLIGRAM, QD (PROGRESSIVELY INCREASING THE DOSE EVERY 2 WEEKS UNTIL REACHING DOSES OF 0-0-100 MG)
     Route: 065
  10. CENOBAMATE [Suspect]
     Active Substance: CENOBAMATE
     Dosage: 100 MILLIGRAM, QD (PROGRESSIVELY INCREASING THE DOSE EVERY 2 WEEKS UNTIL REACHING DOSES OF 0-0-100 MG)
  11. CENOBAMATE [Suspect]
     Active Substance: CENOBAMATE
     Dosage: 100 MILLIGRAM, QD (PROGRESSIVELY INCREASING THE DOSE EVERY 2 WEEKS UNTIL REACHING DOSES OF 0-0-100 MG)
  12. CENOBAMATE [Suspect]
     Active Substance: CENOBAMATE
     Dosage: 100 MILLIGRAM, QD (PROGRESSIVELY INCREASING THE DOSE EVERY 2 WEEKS UNTIL REACHING DOSES OF 0-0-100 MG)
     Route: 065
  13. LACOSAMIDE [Suspect]
     Active Substance: LACOSAMIDE
     Indication: Product used for unknown indication
  14. LACOSAMIDE [Suspect]
     Active Substance: LACOSAMIDE
     Route: 065
  15. LACOSAMIDE [Suspect]
     Active Substance: LACOSAMIDE
     Route: 065
  16. LACOSAMIDE [Suspect]
     Active Substance: LACOSAMIDE
  17. CLOBAZAM [Suspect]
     Active Substance: CLOBAZAM
     Indication: Product used for unknown indication
  18. CLOBAZAM [Suspect]
     Active Substance: CLOBAZAM
     Route: 065
  19. CLOBAZAM [Suspect]
     Active Substance: CLOBAZAM
     Route: 065
  20. CLOBAZAM [Suspect]
     Active Substance: CLOBAZAM
  21. CARBAMAZEPINE [Suspect]
     Active Substance: CARBAMAZEPINE
     Indication: Product used for unknown indication
  22. CARBAMAZEPINE [Suspect]
     Active Substance: CARBAMAZEPINE
     Route: 065
  23. CARBAMAZEPINE [Suspect]
     Active Substance: CARBAMAZEPINE
     Route: 065
  24. CARBAMAZEPINE [Suspect]
     Active Substance: CARBAMAZEPINE

REACTIONS (4)
  - Drug ineffective [Unknown]
  - Aggression [Unknown]
  - Suicidal ideation [Recovered/Resolved]
  - Seizure [Unknown]
